FAERS Safety Report 5518836-2 (Version None)
Quarter: 2007Q4

REPORT INFORMATION
  Report Type: 
  Country: None (occurrence: None)
  Receive Date: 20071113
  Receipt Date: 20071031
  Transmission Date: 20080405
  Serious: Yes (Other)
  Sender: FDA-Public Use
  Company Number: CIP07002284

PATIENT
  Age: 81 Year
  Sex: Female

DRUGS (2)
  1. ACTONEL [Suspect]
     Indication: OSTEOPOROSIS
     Dosage: 1 TABLET DAILY CYCLIC, ORAL
     Route: 048
     Dates: start: 20070101, end: 20070101
  2. ACTONEL [Suspect]
     Indication: OSTEOPOROSIS
     Dosage: 35 MG, ORAL
     Route: 048
     Dates: start: 20050902, end: 20070101

REACTIONS (3)
  - BREAST CANCER FEMALE [None]
  - BREAST CANCER RECURRENT [None]
  - METASTASES TO BONE [None]
